FAERS Safety Report 4918720-9 (Version None)
Quarter: 2006Q1

REPORT INFORMATION
  Report Type: 
  Country: None (occurrence: None)
  Receive Date: 20060216
  Receipt Date: 20060205
  Transmission Date: 20060701
  Serious: Yes (Other)
  Sender: FDA-Public Use
  Company Number: 2006017108

PATIENT
  Age: 1 Month
  Sex: Female
  Weight: 3.6288 kg

DRUGS (1)
  1. INFANT'S PEDICARE                            DECONGESTANT AND COUGH DR [Suspect]
     Indication: NASOPHARYNGITIS
     Dosage: 0.4 ML EVERY FOUR HOURS, ORAL
     Route: 048
     Dates: start: 20060203, end: 20060205

REACTIONS (3)
  - ANOREXIA [None]
  - NERVOUSNESS [None]
  - RESTLESSNESS [None]
